FAERS Safety Report 6239614-5 (Version None)
Quarter: 2009Q2

REPORT INFORMATION
  Report Type: 
  Country: None (occurrence: None)
  Receive Date: 20090622
  Receipt Date: 20090605
  Transmission Date: 20091009
  Serious: Yes (Other)
  Sender: FDA-Public Use
  Company Number: US-BAXTER-2009BH009978

PATIENT
  Sex: Female

DRUGS (2)
  1. PHENERGAN [Suspect]
     Indication: PAIN
     Route: 042
     Dates: start: 20081023
  2. PHENERGAN [Suspect]
     Indication: NAUSEA
     Route: 042
     Dates: start: 20081023

REACTIONS (2)
  - EXTRAVASATION [None]
  - EXTREMITY NECROSIS [None]
